FAERS Safety Report 17282349 (Version 1)
Quarter: 2020Q1

REPORT INFORMATION
  Report Type: Spontaneous
  Country: US (occurrence: US)
  Receive Date: 20200117
  Receipt Date: 20200117
  Transmission Date: 20200409
  Serious: Yes (Other)
  Sender: FDA-Public Use
  Company Number: None

PATIENT
  Sex: Male

DRUGS (1)
  1. DOXYCYCLINE. [Suspect]
     Active Substance: DOXYCYCLINE

REACTIONS (7)
  - Food interaction [None]
  - Anxiety [None]
  - Depression [None]
  - Panic attack [None]
  - Condition aggravated [None]
  - Suicidal ideation [None]
  - Abdominal discomfort [None]

NARRATIVE: CASE EVENT DATE: 20200115
